FAERS Safety Report 6859647-5 (Version None)
Quarter: 2010Q3

REPORT INFORMATION
  Report Type: 
  Country: None (occurrence: None)
  Receive Date: 20100719
  Receipt Date: 20090831
  Transmission Date: 20110219
  Serious: No
  Sender: FDA-Public Use
  Company Number: US-PFIZER INC-2008013534

PATIENT
  Sex: Male
  Weight: 72.6 kg

DRUGS (19)
  1. CHANTIX [Suspect]
     Indication: SMOKING CESSATION THERAPY
     Dates: start: 20080125, end: 20080206
  2. ANDROGEL [Suspect]
  3. CYMBALTA [Concomitant]
  4. AMITRIPTYLINE HYDROCHLORIDE [Concomitant]
  5. AMITRIPTYLINE HYDROCHLORIDE [Concomitant]
  6. ALLEGRA [Concomitant]
  7. REYATAZ [Concomitant]
  8. TRUVADA [Concomitant]
  9. NEURONTIN [Concomitant]
  10. OXYCODONE HCL [Concomitant]
  11. LORAZEPAM [Concomitant]
  12. REGLAN [Concomitant]
  13. COMPAZINE [Concomitant]
  14. LISINOPRIL [Concomitant]
  15. TESTOSTERONE [Concomitant]
  16. BACTRIM [Concomitant]
  17. ZITHROMAX [Concomitant]
  18. FENTANYL [Concomitant]
  19. MARINOL [Concomitant]

REACTIONS (12)
  - ABNORMAL DREAMS [None]
  - AGITATION [None]
  - ANGER [None]
  - ANXIETY [None]
  - DIZZINESS [None]
  - EMOTIONAL DISORDER [None]
  - FEELING ABNORMAL [None]
  - IRRITABILITY [None]
  - MOOD ALTERED [None]
  - PERSONALITY CHANGE [None]
  - POOR QUALITY SLEEP [None]
  - TOBACCO WITHDRAWAL SYMPTOMS [None]
